FAERS Safety Report 16289038 (Version 1)
Quarter: 2019Q2

REPORT INFORMATION
  Report Type: Spontaneous
  Country: US (occurrence: US)
  Receive Date: 20190402
  Receipt Date: 20190402
  Transmission Date: 20190711
  Serious: Yes (Hospitalization)
  Sender: FDA-Public Use
  Company Number: None

PATIENT
  Age: 61 Year
  Sex: Male
  Weight: 92 kg

DRUGS (3)
  1. SULFAMETHIZOLE/TRIMETHOPRIM [Suspect]
     Active Substance: SULFAMETHIZOLE\TRIMETHOPRIM
     Indication: ECZEMA
     Dosage: ?          OTHER DOSE:800/160 MG;?
     Route: 048
     Dates: start: 20180610, end: 20180620
  2. BACITRACIN/NEOMYCIN/POLYMIXIN [Suspect]
     Active Substance: BACITRACIN\NEOMYCIN\POLYMYXIN
     Indication: ERYTHEMA
     Route: 061
     Dates: start: 20180704
  3. BACITRACIN/NEOMYCIN/POLYMIXIN [Suspect]
     Active Substance: BACITRACIN\NEOMYCIN\POLYMYXIN
     Indication: PRURITUS

REACTIONS (2)
  - Dermatitis contact [None]
  - Erythema multiforme [None]

NARRATIVE: CASE EVENT DATE: 20180707
